FAERS Safety Report 16233856 (Version 3)
Quarter: 2019Q2

REPORT INFORMATION
  Report Type: Spontaneous
  Country: US (occurrence: US)
  Receive Date: 20190424
  Receipt Date: 20190503
  Transmission Date: 20190711
  Serious: Yes (Other)
  Sender: FDA-Public Use
  Company Number: US-ASTRAZENECA-2019SE50680

PATIENT
  Sex: Female

DRUGS (4)
  1. LISINOPRIL. [Suspect]
     Active Substance: LISINOPRIL
     Indication: HYPERTENSION
     Route: 048
     Dates: start: 201802, end: 20190418
  2. OMEPRAZOLE. [Suspect]
     Active Substance: OMEPRAZOLE
     Indication: ABDOMINAL DISCOMFORT
     Route: 048
  3. LYNPARZA [Suspect]
     Active Substance: OLAPARIB
     Indication: OVARIAN CANCER STAGE III
     Route: 048
     Dates: start: 20190319
  4. ELIQUIS [Concomitant]
     Active Substance: APIXABAN
     Indication: ANTICOAGULANT THERAPY

REACTIONS (10)
  - Panic reaction [Unknown]
  - Fatigue [Recovering/Resolving]
  - Drug ineffective [Unknown]
  - Pulmonary embolism [Unknown]
  - Blood pressure decreased [Unknown]
  - Carbohydrate antigen 125 increased [Unknown]
  - Somnolence [Unknown]
  - Decreased appetite [Unknown]
  - Tumour marker increased [Unknown]
  - Thrombocytopenia [Unknown]
